FAERS Safety Report 4323854-6 (Version None)
Quarter: 2004Q1

REPORT INFORMATION
  Report Type: 
  Country: None (occurrence: None)
  Receive Date: 20040319
  Receipt Date: 20040302
  Transmission Date: 20041129
  Serious: Yes (Death)
  Sender: FDA-Public Use
  Company Number: WAES 0403USA00576

PATIENT

DRUGS (1)
  1. INDOCIN I.V. [Suspect]
     Indication: PATENT DUCTUS ARTERIOSUS
     Dosage: IV
     Route: 042

REACTIONS (3)
  - BACTERIAL SEPSIS [None]
  - DRUG INEFFECTIVE [None]
  - SEPSIS NEONATAL [None]
